FAERS Safety Report 5067883-6 (Version None)
Quarter: 2006Q3

REPORT INFORMATION
  Report Type: 
  Country: None (occurrence: None)
  Receive Date: 20060714
  Receipt Date: 20060505
  Transmission Date: 20061208
  Serious: Yes (Other)
  Sender: FDA-Public Use
  Company Number: HQWYE204605MAY06

PATIENT
  Age: 43 Year
  Sex: Male
  Weight: 86.26 kg

DRUGS (2)
  1. ADVIL [Suspect]
     Dosage: ^2 PILLS AS NEEDED^, ORAL
     Route: 048
     Dates: start: 20050424
  2. DOANS EXTRA STRENGTH (MAGNESIUM SALICYLATE, ) [Suspect]
     Indication: BACK DISORDER
     Dosage: 1160 MG 1X PER 1 DAY, ORAL
     Route: 048
     Dates: start: 20050424

REACTIONS (3)
  - BLOOD PRESSURE INCREASED [None]
  - HEADACHE [None]
  - HEART RATE INCREASED [None]
